FAERS Safety Report 10404615 (Version 1)
Quarter: 2014Q2

REPORT INFORMATION
  Report Type: Spontaneous
  Country: US (occurrence: None)
  Receive Date: 20140602
  Receipt Date: 20140602
  Transmission Date: 20141212
  Serious: Yes (Other)
  Sender: FDA-Public Use
  Company Number: 149607

PATIENT
  Age: 40 Year
  Sex: Female

DRUGS (4)
  1. ACETYLCYSTEINE [Suspect]
     Indication: OVERDOSE
     Dosage: OVER 4 HOUR INFUSION
     Dates: start: 20130715
  2. ZOFRAN [Concomitant]
  3. NALOXONE [Concomitant]
  4. NORMAL SALINE [Concomitant]

REACTIONS (1)
  - Incorrect route of drug administration [None]
